FAERS Safety Report 9011723 (Version 1)
Quarter: 2013Q1

REPORT INFORMATION
  Report Type: Spontaneous
  Country: US (occurrence: US)
  Receive Date: 20130114
  Receipt Date: 20130114
  Transmission Date: 20140127
  Serious: Yes (Other)
  Sender: FDA-Public Use
  Company Number: US-009507513-0901USA02245

PATIENT
  Age: 41 Year
  Sex: Female
  Weight: 170.1 kg

DRUGS (8)
  1. SINGULAIR [Suspect]
     Indication: HYPERSENSITIVITY
     Dosage: 10 MG, HS
     Route: 048
     Dates: start: 200701, end: 200806
  2. SINGULAIR [Suspect]
     Indication: ASTHMA
  3. AVALIDE [Concomitant]
     Dosage: BID
  4. TOPROL XL TABLETS [Concomitant]
     Dosage: DAILY
  5. ZOLOFT [Concomitant]
     Indication: DEPRESSION
     Dosage: 100 MG, QD
     Route: 048
     Dates: start: 2003, end: 200703
  6. ZOLOFT [Concomitant]
     Dosage: 100 MG, BID
     Route: 048
     Dates: start: 200703
  7. PRILOSEC [Concomitant]
     Dosage: BID
  8. CHONDROITIN SULFATE SODIUM (+) GLUCOSAMINE HYDROCHLORIDE [Concomitant]
     Dosage: DAILY

REACTIONS (10)
  - Condition aggravated [Recovered/Resolved]
  - Feeling abnormal [Unknown]
  - Hypersomnia [Unknown]
  - Indifference [Recovered/Resolved]
  - Sleep terror [Unknown]
  - Unemployment [Recovered/Resolved]
  - Weight increased [Unknown]
  - Suicidal ideation [Recovered/Resolved]
  - Abnormal dreams [Recovering/Resolving]
  - Fatigue [Unknown]
